FAERS Safety Report 9116616 (Version 3)
Quarter: 2014Q2

REPORT INFORMATION
  Report Type: Spontaneous
  Country: JP (occurrence: JP)
  Receive Date: 20130225
  Receipt Date: 20140404
  Transmission Date: 20141212
  Serious: Yes (Life-Threatening, Hospitalization)
  Sender: FDA-Public Use
  Company Number: JP-NOVOPROD-371156

PATIENT
  Age: 67 Year
  Sex: Male
  Weight: 56 kg

DRUGS (14)
  1. NOVORAPID CHU FLEXPEN [Suspect]
     Indication: TYPE 1 DIABETES MELLITUS
     Dosage: 13 IU, QD
     Route: 058
     Dates: start: 20120218
  2. NOVOLIN N CHU FLEXPEN [Suspect]
     Indication: TYPE 1 DIABETES MELLITUS
     Dosage: 12-13IU/DAY
     Route: 058
     Dates: end: 20120217
  3. NOVOLIN R CHU FLEXPEN [Suspect]
     Indication: TYPE 1 DIABETES MELLITUS
     Dosage: 24-30 IU/DAY
     Route: 058
     Dates: end: 20120217
  4. LANTUS [Suspect]
     Indication: TYPE 1 DIABETES MELLITUS
     Dosage: 6 IU, QD
     Route: 058
     Dates: start: 20120218
  5. UBRETID [Suspect]
     Indication: NEUROGENIC BLADDER
     Dosage: 5 MG, QD
     Route: 048
     Dates: start: 20080827
  6. BAYASPIRIN [Concomitant]
     Indication: CEREBRAL INFARCTION
     Dosage: 100 MG, QD
     Route: 048
     Dates: end: 20121023
  7. NORVASC [Concomitant]
     Indication: HYPERTENSION
     Dosage: 10 MG, QD
     Route: 048
  8. MICARDIS [Concomitant]
     Indication: HYPERTENSION
     Dosage: 80 MG, QD
     Route: 048
  9. LASIX                              /00032601/ [Concomitant]
     Indication: DIABETIC NEPHROPATHY
     Dosage: 40 MG, QD
     Route: 048
     Dates: end: 20121023
  10. ZYLORIC [Concomitant]
     Indication: DIABETIC NEPHROPATHY
     Dosage: 50 MG, QD
     Route: 058
  11. TAKEPRON [Concomitant]
     Dosage: 15 MG, QD
     Route: 048
  12. MEILAX [Concomitant]
     Dosage: 2 MG, QD
     Route: 048
  13. MYSLEE [Concomitant]
     Dosage: 10 MG, QD
  14. SENNOSIDE                          /00571901/ [Concomitant]
     Dosage: 24 MG, QD
     Route: 048

REACTIONS (3)
  - Hypothermia [Recovered/Resolved]
  - Bradycardia [Recovered/Resolved]
  - Hypoglycaemia [Recovering/Resolving]
